FAERS Safety Report 6373977-5 (Version None)
Quarter: 2009Q3

REPORT INFORMATION
  Report Type: 
  Country: None (occurrence: None)
  Receive Date: 20090924
  Receipt Date: 20090911
  Transmission Date: 20100115
  Serious: Yes (Other)
  Sender: FDA-Public Use
  Company Number: PL-ROCHE-656381

PATIENT
  Sex: Male

DRUGS (2)
  1. PEGASYS [Suspect]
     Indication: DRUG USE FOR UNKNOWN INDICATION
     Dosage: PATIENT WAS TREATED IN THE PERIOD BETWEEN 2005 - 2006
     Route: 065
  2. PEGASYS [Suspect]
     Dosage: DOSE REDUCED
     Route: 065
     Dates: end: 20060802

REACTIONS (8)
  - ADMINISTRATION SITE REACTION [None]
  - DISEASE RECURRENCE [None]
  - DRUG ADMINISTRATION ERROR [None]
  - INFLAMMATION [None]
  - MALAISE [None]
  - MUSCLE ATROPHY [None]
  - MUSCULOSKELETAL PAIN [None]
  - OEDEMA PERIPHERAL [None]
